FAERS Safety Report 9167506 (Version 1)
Quarter: 2013Q1

REPORT INFORMATION
  Report Type: Spontaneous
  Country: US (occurrence: US)
  Receive Date: 20130318
  Receipt Date: 20130318
  Transmission Date: 20140127
  Serious: Yes (Life-Threatening, Hospitalization)
  Sender: FDA-Public Use
  Company Number: US-BAYER-2013-031486

PATIENT
  Age: 40 Year
  Sex: Female
  Weight: 76.19 kg

DRUGS (12)
  1. GIANVI [Suspect]
     Indication: PREMENSTRUAL SYNDROME
     Dosage: UNK
     Dates: start: 201006, end: 20111011
  2. GIANVI [Suspect]
     Indication: MENSTRUATION IRREGULAR
  3. GIANVI [Suspect]
     Indication: HEADACHE
  4. YAZ [Suspect]
     Indication: PREMENSTRUAL SYNDROME
     Dosage: UNK
     Dates: start: 201002, end: 201005
  5. YAZ [Suspect]
     Indication: MENSTRUATION IRREGULAR
  6. YAZ [Suspect]
     Indication: HEADACHE
  7. SPIRONOLACTONE [Concomitant]
     Indication: ACNE
     Dosage: 100 MG, EVERY MORNING
     Route: 048
     Dates: start: 200511
  8. PREDNISONE [Concomitant]
     Dosage: 20 MG, 1 TABLET 3 TIMES DAILY
     Route: 048
  9. SULFAMETHOPRIM [Concomitant]
     Dosage: 800/160 TAKE 1 TABLET EVERY 12 HOURS
     Route: 048
  10. AZITHROMYCIN [Concomitant]
     Dosage: 250 MG, 2 TABLET DAY ON ONE AND THEN 1 TABLET FOR 4 DAY
     Route: 048
  11. EXCEDRIN MIGRAINE [Concomitant]
     Indication: HEADACHE
     Dosage: AS NEEDED
  12. IBUPROFEN [IBUPROFEN] [Concomitant]
     Indication: HEADACHE
     Dosage: AS NEEDED
     Dates: start: 2001, end: 201110

REACTIONS (7)
  - Pulmonary embolism [None]
  - Off label use [None]
  - Musculoskeletal pain [None]
  - Flank pain [None]
  - Chest discomfort [None]
  - Chest pain [None]
  - Dyspnoea [None]
